FAERS Safety Report 9707787 (Version 1)
Quarter: 2013Q4

REPORT INFORMATION
  Report Type: Spontaneous
  Country: IT (occurrence: None)
  Receive Date: 20131121
  Receipt Date: 20131121
  Transmission Date: 20140711
  Serious: Yes (Other)
  Sender: FDA-Public Use
  Company Number: 2016776

PATIENT
  Age: 66 Year
  Sex: Female
  Weight: 70 kg

DRUGS (8)
  1. IRINOTECAN HYDROCHLORIDE [Suspect]
     Indication: COLON CANCER
     Dosage: CYCLICAL
     Route: 042
     Dates: start: 20130514, end: 20130529
  2. FLUOROURACIL [Suspect]
     Indication: COLON CANCER
     Dosage: CYCLICAL
     Route: 040
     Dates: start: 20130514, end: 20130529
  3. FLUOROURACIL [Suspect]
     Indication: COLON CANCER
     Dosage: CYCLICAL
     Route: 040
     Dates: start: 20130514, end: 20130529
  4. AVASTIN /00848101/ [Suspect]
     Indication: COLON CANCER
     Dosage: 350 MG MILLIGRAM(S) (CYCLICAL) INTRAVENOUS BOLUS
     Route: 040
     Dates: start: 20130514, end: 20130529
  5. (RANIDIL) [Concomitant]
  6. (SOLDESAM) [Concomitant]
  7. (LEVOFOLENE) [Concomitant]
  8. (ONDANSETRONE HIKMA) [Concomitant]

REACTIONS (8)
  - Anorectal discomfort [None]
  - Dysphonia [None]
  - Nausea [None]
  - Vomiting [None]
  - Asthenia [None]
  - Abdominal pain [None]
  - Skin depigmentation [None]
  - Toxicity to various agents [None]
